FAERS Safety Report 18243601 (Version 1)
Quarter: 2020Q3

REPORT INFORMATION
  Report Type: Spontaneous
  Country: FR (occurrence: FR)
  Receive Date: 20200908
  Receipt Date: 20200908
  Transmission Date: 20201103
  Serious: Yes (Life-Threatening, Other)
  Sender: FDA-Public Use
  Company Number: FR-JNJFOC-20200846755

PATIENT
  Age: 17 Year
  Sex: Female

DRUGS (1)
  1. TRAMADOL HYDROCHLORIDE. [Suspect]
     Active Substance: TRAMADOL HYDROCHLORIDE
     Indication: PRODUCT USE IN UNAPPROVED INDICATION
     Dosage: 7 GRAM, ONCE
     Route: 048
     Dates: start: 20200124, end: 20200124

REACTIONS (4)
  - Drug abuse [Recovered/Resolved with Sequelae]
  - Generalised tonic-clonic seizure [Recovered/Resolved]
  - Overdose [Recovered/Resolved]
  - Toxic cardiomyopathy [Recovered/Resolved]

NARRATIVE: CASE EVENT DATE: 20200124
